FAERS Safety Report 11965906 (Version 1)
Quarter: 2016Q1

REPORT INFORMATION
  Report Type: Spontaneous
  Country: CN (occurrence: CN)
  Receive Date: 20160127
  Receipt Date: 20160127
  Transmission Date: 20160526
  Serious: Yes (Hospitalization)
  Sender: FDA-Public Use
  Company Number: CN-APOTEX-2016AP005872

PATIENT
  Age: 52 Year
  Sex: Male
  Weight: 80 kg

DRUGS (5)
  1. PAROXETINE HYDROCHLORIDE. [Suspect]
     Active Substance: PAROXETINE HYDROCHLORIDE
     Indication: DEPRESSION
     Dosage: 1 DF,QD
     Route: 048
     Dates: start: 201509, end: 20151109
  2. PAXIL [Suspect]
     Active Substance: PAROXETINE HYDROCHLORIDE
     Indication: DEPRESSION
     Dosage: 30 MG, QD
     Route: 048
     Dates: start: 200807
  3. PAXIL [Suspect]
     Active Substance: PAROXETINE HYDROCHLORIDE
     Dosage: 1 DF, Q.AM
  4. PAROXETINE HYDROCHLORIDE. [Suspect]
     Active Substance: PAROXETINE HYDROCHLORIDE
     Dosage: 1 DF, Q.H.S.
  5. PAXIL [Suspect]
     Active Substance: PAROXETINE HYDROCHLORIDE
     Dosage: 2 DF, QD
     Dates: start: 20151109

REACTIONS (6)
  - Mood altered [Unknown]
  - Dry mouth [Not Recovered/Not Resolved]
  - Fatigue [Unknown]
  - Functional gastrointestinal disorder [Not Recovered/Not Resolved]
  - Disease recurrence [Not Recovered/Not Resolved]
  - Weight decreased [Recovered/Resolved]

NARRATIVE: CASE EVENT DATE: 201509
